FAERS Safety Report 5797843-9 (Version None)
Quarter: 2008Q2

REPORT INFORMATION
  Report Type: 
  Country: None (occurrence: None)
  Receive Date: 20080630
  Receipt Date: 20080618
  Transmission Date: 20081010
  Serious: Yes (Hospitalization)
  Sender: FDA-Public Use
  Company Number: UKP08000114

PATIENT
  Age: 57 Year
  Sex: Male
  Weight: 80 kg

DRUGS (6)
  1. ASACOL [Suspect]
     Indication: CROHN'S DISEASE
     Dosage: 1000 MG, 3/DAY; ORAL
     Route: 048
     Dates: start: 20050101, end: 20051101
  2. AZATHIOPRINE [Suspect]
     Indication: CROHN'S DISEASE
     Dosage: 50 MG, 3/DAY, ORAL
     Route: 048
     Dates: start: 20050101, end: 20051101
  3. AMOXYCILLIN /00249601/ (AMOXICILLIN) [Concomitant]
  4. ATENOLOL 9ATENOLOL) [Concomitant]
  5. BENDROFLUAZIDE (BENDROFLUMETHIAZIDE) [Concomitant]
  6. RAMIPRIL [Concomitant]

REACTIONS (1)
  - LUNG DISORDER [None]
